FAERS Safety Report 9508563 (Version 2)
Quarter: 2013Q3

REPORT INFORMATION
  Report Type: Spontaneous
  Country: US (occurrence: US)
  Receive Date: 20130909
  Receipt Date: 20130909
  Transmission Date: 20140515
  Serious: Yes (Death)
  Sender: FDA-Public Use
  Company Number: US-BAXTER-2013BAX034870

PATIENT
  Age: 64 Year
  Sex: Female

DRUGS (3)
  1. DIANEAL LOW CALCIUM [Suspect]
     Indication: PERITONEAL DIALYSIS
     Route: 033
     Dates: start: 2005, end: 20130902
  2. EXTRANEAL [Suspect]
     Indication: PERITONEAL DIALYSIS
     Route: 033
     Dates: start: 2005, end: 20130902
  3. HYDROCODONE [Concomitant]
     Indication: PRODUCT USED FOR UNKNOWN INDICATION

REACTIONS (5)
  - Ulcer [Fatal]
  - Gastrointestinal haemorrhage [Fatal]
  - Haemothorax [Fatal]
  - Cardiac arrest [Fatal]
  - Heart rate increased [Fatal]
